FAERS Safety Report 4349066-8 (Version None)
Quarter: 2004Q2

REPORT INFORMATION
  Report Type: 
  Country: None (occurrence: None)
  Receive Date: 20040428
  Receipt Date: 20040408
  Transmission Date: 20050107
  Serious: Yes (Death, Hospitalization)
  Sender: FDA-Public Use
  Company Number: US-BRISTOL-MYERS SQUIBB COMPANY-12554713

PATIENT
  Age: 68 Year
  Sex: Female

DRUGS (10)
  1. TAXOL [Suspect]
     Indication: BREAST CANCER METASTATIC
     Dosage: 70 MG/M2
     Route: 042
     Dates: start: 20040325, end: 20040325
  2. ADRIAMYCIN PFS [Suspect]
     Indication: BREAST CANCER METASTATIC
     Dosage: 15 MG/M2
     Route: 042
     Dates: start: 20040325, end: 20040325
  3. HYDROCHLOROTHIAZIDE [Concomitant]
     Route: 048
  4. VICODIN [Concomitant]
     Route: 048
  5. COMPAZINE [Concomitant]
     Route: 048
  6. DARVON [Concomitant]
     Route: 048
  7. COUMADIN [Concomitant]
     Route: 048
  8. DURACEF CAPS 500 MG [Concomitant]
     Route: 048
  9. KEFLEX [Concomitant]
     Route: 048
  10. DECADRON [Concomitant]
     Indication: PREMEDICATION
     Dosage: 30 MG PRIOR TO CHEMO
     Route: 042

REACTIONS (7)
  - ASTHENIA [None]
  - BLOOD GLUCOSE INCREASED [None]
  - COUGH [None]
  - HAEMOGLOBIN DECREASED [None]
  - HYPOXIA [None]
  - PNEUMONIA [None]
  - RESPIRATORY FAILURE [None]
